FAERS Safety Report 7772748-2 (Version None)
Quarter: 2011Q3

REPORT INFORMATION
  Report Type: 
  Country: None (occurrence: None)
  Receive Date: 20110922
  Receipt Date: 20110207
  Transmission Date: 20111222
  Serious: No
  Sender: FDA-Public Use
  Company Number: US-ASTRAZENECA-2010SE31823

PATIENT
  Age: 30 Year
  Sex: Male
  Weight: 86.6 kg

DRUGS (6)
  1. SEROQUEL [Suspect]
     Indication: BIPOLAR DISORDER
     Route: 048
     Dates: end: 20100129
  2. LOPRESSOR [Concomitant]
     Indication: HYPERTENSION
  3. PERCOCET [Concomitant]
     Indication: BACK PAIN
  4. SEROQUEL [Suspect]
     Indication: SCHIZOPHRENIA, PARANOID TYPE
     Route: 048
     Dates: end: 20100129
  5. TRAZODONE HYDROCHLORIDE [Concomitant]
     Indication: INSOMNIA
  6. ATIVAN [Concomitant]
     Indication: ANXIETY

REACTIONS (4)
  - PANCREATIC CYST [None]
  - DIABETES MELLITUS [None]
  - BLOOD CHOLESTEROL INCREASED [None]
  - WEIGHT INCREASED [None]
